FAERS Safety Report 19023460 (Version 1)
Quarter: 2021Q1

REPORT INFORMATION
  Report Type: Spontaneous
  Country: US (occurrence: US)
  Receive Date: 20210318
  Receipt Date: 20210318
  Transmission Date: 20210420
  Serious: No
  Sender: FDA-Public Use
  Company Number: US-ASTRAZENECA-2021A114647

PATIENT
  Age: 26258 Day
  Sex: Female
  Weight: 70.8 kg

DRUGS (6)
  1. LIPITOR [Concomitant]
     Active Substance: ATORVASTATIN CALCIUM
  2. LISINOPRIL. [Concomitant]
     Active Substance: LISINOPRIL
  3. BABY ASPIRIN [Concomitant]
     Active Substance: ASPIRIN
  4. MULTIVITAIMN [Concomitant]
  5. BRILINTA [Suspect]
     Active Substance: TICAGRELOR
     Indication: STENT MALFUNCTION
     Route: 048
     Dates: start: 20210220
  6. PANTOPRAZOLE [Concomitant]
     Active Substance: PANTOPRAZOLE

REACTIONS (3)
  - Feeling hot [Not Recovered/Not Resolved]
  - Hyperhidrosis [Not Recovered/Not Resolved]
  - Cough [Not Recovered/Not Resolved]

NARRATIVE: CASE EVENT DATE: 20210222
